FAERS Safety Report 24802156 (Version 1)
Quarter: 2025Q1

REPORT INFORMATION
  Report Type: Spontaneous
  Country: MM (occurrence: MM)
  Receive Date: 20250103
  Receipt Date: 20250103
  Transmission Date: 20250408
  Serious: Yes (Hospitalization)
  Sender: JOHNSON AND JOHNSON
  Company Number: MM-JNJFOC-20241151172

PATIENT
  Age: 35 Year
  Sex: Male
  Weight: 47 kg

DRUGS (9)
  1. SIRTURO [Suspect]
     Active Substance: BEDAQUILINE FUMARATE
     Indication: Meningitis tuberculous
     Route: 048
     Dates: start: 20241008
  2. LINEZOLID [Suspect]
     Active Substance: LINEZOLID
     Indication: Meningitis tuberculous
     Dates: start: 20241008, end: 20241113
  3. LINEZOLID [Suspect]
     Active Substance: LINEZOLID
     Dates: start: 20241119, end: 20241220
  4. LEVOFLOXACIN [Suspect]
     Active Substance: LEVOFLOXACIN
     Indication: Meningitis tuberculous
     Dates: start: 20241008
  5. CLOFAZIMINE [Suspect]
     Active Substance: CLOFAZIMINE
     Indication: Meningitis tuberculous
     Dates: start: 20241008
  6. CYCLOSERINE [Suspect]
     Active Substance: CYCLOSERINE
     Indication: Meningitis tuberculous
     Dates: start: 20241008
  7. ISONIAZID [Suspect]
     Active Substance: ISONIAZID
     Indication: Meningitis tuberculous
     Dates: start: 20241008
  8. PYRAZINAMIDE [Suspect]
     Active Substance: PYRAZINAMIDE
     Indication: Meningitis tuberculous
     Dates: start: 20241008
  9. POTASSIUM [Concomitant]
     Active Substance: POTASSIUM
     Indication: Hypokalaemia
     Dates: start: 20241112, end: 20241126

REACTIONS (2)
  - Anaemia [Recovered/Resolved]
  - Off label use [Unknown]

NARRATIVE: CASE EVENT DATE: 20241029
